FAERS Safety Report 6024539-0 (Version None)
Quarter: 2008Q4

REPORT INFORMATION
  Report Type: 
  Country: None (occurrence: None)
  Receive Date: 20081231
  Receipt Date: 20081103
  Transmission Date: 20090506
  Serious: Yes (Other)
  Sender: FDA-Public Use
  Company Number: US-BRISTOL-MYERS SQUIBB COMPANY-14368187

PATIENT
  Age: 66 Year
  Sex: Female

DRUGS (19)
  1. ORENCIA [Suspect]
     Indication: RHEUMATOID ARTHRITIS
     Dosage: 0, 2 AND 4 WEEKS AND THEN EVERY 4 WEEKS; MOST RECENT INFUSION ON 09-SEP-2008;
     Route: 042
     Dates: start: 20080312
  2. ALLEGRA [Concomitant]
  3. MIRAPEX [Concomitant]
  4. MOBIC [Concomitant]
  5. PREDNISONE [Concomitant]
     Route: 042
  6. FOLIC ACID [Concomitant]
  7. FENTANYL TRANSDERMAL SYSTEM [Concomitant]
  8. PLAVIX [Concomitant]
  9. ASPIRIN [Concomitant]
  10. NEURONTIN [Concomitant]
  11. PRILOSEC [Concomitant]
  12. METHOTREXATE [Concomitant]
  13. TRICOR [Concomitant]
  14. TOPROL-XL [Concomitant]
  15. QUINIDINE HCL [Concomitant]
  16. BONIVA [Concomitant]
  17. CENTRUM SILVER [Concomitant]
  18. VITAMIN D [Concomitant]
  19. CALCIUM [Concomitant]

REACTIONS (1)
  - RHEUMATOID ARTHRITIS [None]
